FAERS Safety Report 5349952-6 (Version None)
Quarter: 2007Q2

REPORT INFORMATION
  Report Type: 
  Country: None (occurrence: None)
  Receive Date: 20070607
  Receipt Date: 20070529
  Transmission Date: 20071010
  Serious: Yes (Other)
  Sender: FDA-Public Use
  Company Number: AR-PFIZER INC-2007044072

PATIENT
  Age: 40 Year
  Sex: Female

DRUGS (4)
  1. IRINOTECAN HCL [Suspect]
     Indication: METASTATIC RENAL CELL CARCINOMA
  2. CISPLATIN [Suspect]
     Indication: LIVER DISORDER
     Route: 013
  3. MITOMYCIN [Suspect]
     Indication: LIVER DISORDER
  4. CETUXIMAB [Concomitant]

REACTIONS (1)
  - REVERSIBLE POSTERIOR LEUKOENCEPHALOPATHY SYNDROME [None]
